FAERS Safety Report 13895503 (Version 2)
Quarter: 2018Q1

REPORT INFORMATION
  Report Type: Spontaneous
  Country: US (occurrence: US)
  Receive Date: 20170823
  Receipt Date: 20180326
  Transmission Date: 20180508
  Serious: No
  Sender: FDA-Public Use
  Company Number: US-PFIZER INC-2017364824

PATIENT
  Age: 59 Year
  Sex: Female
  Weight: 65.76 kg

DRUGS (1)
  1. XELJANZ XR [Suspect]
     Active Substance: TOFACITINIB CITRATE
     Indication: RHEUMATOID ARTHRITIS
     Dosage: 11 MG, DAILY
     Route: 048
     Dates: start: 2017

REACTIONS (5)
  - Musculoskeletal pain [Unknown]
  - Hordeolum [Unknown]
  - Peripheral swelling [Unknown]
  - Eye infection [Unknown]
  - Spinal pain [Unknown]
